FAERS Safety Report 9475705 (Version 1)
Quarter: 2013Q3

REPORT INFORMATION
  Report Type: Spontaneous
  Country: FI (occurrence: FI)
  Receive Date: 20130826
  Receipt Date: 20130826
  Transmission Date: 20140515
  Serious: Yes (Death)
  Sender: FDA-Public Use
  Company Number: PHHY2013FI091488

PATIENT
  Age: 62 Year
  Sex: Male

DRUGS (3)
  1. GLIVEC [Suspect]
     Indication: CHRONIC MYELOID LEUKAEMIA
     Dosage: 400 MG, UNK
     Route: 048
     Dates: start: 2002
  2. COZAAR [Concomitant]
     Indication: HYPERTENSION
     Dosage: 100 MG, ONCE PER DAY
     Route: 048
  3. EMGESAN [Concomitant]
     Indication: MUSCLE SPASMS
     Dosage: 2 TABLETS IN EVENING
     Route: 048

REACTIONS (1)
  - Arrhythmia [Fatal]
